FAERS Safety Report 8503248 (Version 2)
Quarter: 2012Q4

REPORT INFORMATION
  Report Type: 
  Country: JP (occurrence: JP)
  Receive Date: 20120411
  Receipt Date: 20120912
  Transmission Date: 20130627
  Serious: Yes (Other)
  Sender: FDA-Public Use
  Company Number: JP-PFIZER INC-2012087109

PATIENT
  Age: 50 Year
  Sex: Male

DRUGS (1)
  1. BANAN [Suspect]
     Indication: PRODUCT USED FOR UNKNOWN INDICATION
     Dosage: UNK
     Dates: start: 200908, end: 200908

REACTIONS (1)
  - Oculomucocutaneous syndrome [Unknown]
